FAERS Safety Report 7137456-X (Version None)
Quarter: 2010Q4

REPORT INFORMATION
  Report Type: 
  Country: None (occurrence: None)
  Receive Date: 20101206
  Receipt Date: 20090920
  Transmission Date: 20110411
  Serious: Yes (Death)
  Sender: FDA-Public Use
  Company Number: DE-ACTELION-A-US2009-26907

PATIENT

DRUGS (1)
  1. VENTAVIS [Suspect]
     Route: 055

REACTIONS (1)
  - DEATH [None]
